FAERS Safety Report 23115718 (Version 1)
Quarter: 2023Q4

REPORT INFORMATION
  Report Type: Spontaneous
  Country: US (occurrence: US)
  Receive Date: 20231027
  Receipt Date: 20231027
  Transmission Date: 20240109
  Serious: No
  Sender: FDA-Public Use
  Company Number: US-ABBVIE-5462021

PATIENT
  Age: 54 Year
  Sex: Female
  Weight: 95.254 kg

DRUGS (2)
  1. HUMIRA [Suspect]
     Active Substance: ADALIMUMAB
     Indication: Uveitis
     Dosage: FORM STRENGTH: 80 MG;?FREQUENCY TEXT: 1ST DOSE
     Route: 058
     Dates: start: 20230301, end: 20230301
  2. HUMIRA [Suspect]
     Active Substance: ADALIMUMAB
     Indication: Birdshot chorioretinopathy
     Dosage: FORM STRENGTH: 40 MG
     Route: 058
     Dates: start: 20230308

REACTIONS (1)
  - Poor quality product administered [Not Recovered/Not Resolved]

NARRATIVE: CASE EVENT DATE: 20231011
